FAERS Safety Report 22237084 (Version 2)
Quarter: 2023Q2

REPORT INFORMATION
  Report Type: Spontaneous
  Country: US (occurrence: None)
  Receive Date: 20230421
  Receipt Date: 20230421
  Transmission Date: 20230722
  Serious: No
  Sender: FDA-Public Use
  Company Number: US-ROCHE-3234599

PATIENT
  Age: 63 Year
  Sex: Female

DRUGS (1)
  1. ESBRIET [Suspect]
     Active Substance: PIRFENIDONE
     Indication: Idiopathic pulmonary fibrosis
     Dosage: SHE WAS DECREASED TO 267MG TID FROM JUNE-OCT, THEN?INCREASED TO 534 MG TID WHEN HER LFTS NORMALIZED
     Route: 065

REACTIONS (1)
  - Liver function test increased [Recovered/Resolved]
